FAERS Safety Report 6342818-4 (Version None)
Quarter: 2009Q3

REPORT INFORMATION
  Report Type: 
  Country: None (occurrence: None)
  Receive Date: 20090908
  Receipt Date: 20090831
  Transmission Date: 20100115
  Serious: Yes (Other)
  Sender: FDA-Public Use
  Company Number: DE-JNJFOC-20090900282

PATIENT
  Age: 16 Month
  Sex: Female

DRUGS (9)
  1. TOPAMAX [Suspect]
     Indication: INFANTILE SPASMS
     Route: 048
  2. PETNIDAN [Interacting]
     Indication: DRUG USE FOR UNKNOWN INDICATION
     Route: 065
  3. OMEPRAZOLE [Interacting]
     Indication: DRUG USE FOR UNKNOWN INDICATION
     Route: 065
  4. BISOPROLOL [Interacting]
     Indication: DRUG USE FOR UNKNOWN INDICATION
     Route: 065
  5. CEFUROXIME [Interacting]
     Indication: DRUG USE FOR UNKNOWN INDICATION
     Route: 065
  6. LASIX [Interacting]
     Indication: DRUG USE FOR UNKNOWN INDICATION
     Route: 065
  7. AZOPT [Interacting]
     Indication: DRUG USE FOR UNKNOWN INDICATION
     Route: 065
  8. VOLTAREN [Interacting]
     Indication: DRUG USE FOR UNKNOWN INDICATION
     Route: 065
  9. CORNEREGEL EDO [Interacting]
     Indication: DRUG USE FOR UNKNOWN INDICATION
     Route: 065

REACTIONS (6)
  - BLOOD POTASSIUM DECREASED [None]
  - BLOOD SODIUM DECREASED [None]
  - DRUG INTERACTION [None]
  - GLAUCOMA [None]
  - IMPAIRED GASTRIC EMPTYING [None]
  - OFF LABEL USE [None]
